FAERS Safety Report 24986934 (Version 1)
Quarter: 2025Q1

REPORT INFORMATION
  Report Type: Spontaneous
  Country: US (occurrence: US)
  Receive Date: 20250219
  Receipt Date: 20250219
  Transmission Date: 20250408
  Serious: No
  Sender: SANDOZ
  Company Number: US-SANDOZ-SDZ2025US009709

PATIENT
  Age: 75 Year
  Sex: Male
  Weight: 74.09 kg

DRUGS (2)
  1. ENOXAPARIN [Suspect]
     Active Substance: ENOXAPARIN
     Indication: Hypercoagulation
     Dosage: 80 MG, BID, EVERY 12 HOURS
     Route: 058
     Dates: start: 202412
  2. ENOXAPARIN [Suspect]
     Active Substance: ENOXAPARIN
     Indication: Cerebrovascular accident

REACTIONS (1)
  - Injection site pain [Recovered/Resolved]

NARRATIVE: CASE EVENT DATE: 20241201
